FAERS Safety Report 7478111-6 (Version None)
Quarter: 2011Q2

REPORT INFORMATION
  Report Type: 
  Country: None (occurrence: None)
  Receive Date: 20110513
  Receipt Date: 20110428
  Transmission Date: 20111010
  Serious: Yes (Hospitalization)
  Sender: FDA-Public Use
  Company Number: CA-JNJFOC-20110500769

PATIENT
  Sex: Male
  Weight: 100.5 kg

DRUGS (11)
  1. HYDROXYZINE [Concomitant]
     Route: 048
  2. TRAZODONE HCL [Concomitant]
     Indication: INSOMNIA
     Route: 048
  3. PANTOLOC [Concomitant]
     Indication: GASTRIC DISORDER
     Route: 048
  4. URSODIOL [Concomitant]
     Indication: HEPATIC ENZYME
     Dosage: 1750 MG ORAL DAILY IN DIVIDED DOSES
     Route: 048
  5. ESCITALOPRAM [Concomitant]
     Indication: DEPRESSION
     Route: 048
  6. REMICADE [Suspect]
     Indication: CROHN'S DISEASE
     Route: 042
  7. ACTONEL [Concomitant]
     Indication: OSTEOPOROSIS
     Route: 048
  8. PREDNISONE [Concomitant]
     Indication: WEGENER'S GRANULOMATOSIS
     Route: 048
  9. CALCIUM WITH VITAMIN D [Concomitant]
     Indication: OSTEOPOROSIS
     Route: 048
  10. ASACOL [Concomitant]
     Indication: CROHN'S DISEASE
     Dosage: 3 TABS IN 1 DAY
     Route: 048
  11. REMICADE [Suspect]
     Dosage: 21ST INFUSION
     Route: 042

REACTIONS (2)
  - BILE DUCT OBSTRUCTION [None]
  - BILIARY TRACT INFECTION [None]
